FAERS Safety Report 7291364-2 (Version None)
Quarter: 2011Q1

REPORT INFORMATION
  Report Type: 
  Country: None (occurrence: None)
  Receive Date: 20110214
  Receipt Date: 19990203
  Transmission Date: 20110831
  Serious: Yes (Hospitalization, Other)
  Sender: FDA-Public Use
  Company Number: B0063749A

PATIENT
  Sex: Male

DRUGS (7)
  1. RIFAMPICIN [Suspect]
     Indication: PULMONARY TUBERCULOSIS
     Dosage: 150MG THREE TIMES PER DAY
     Route: 048
     Dates: start: 19990102
  2. STREPTOMYCIN SULPHATE [Suspect]
     Indication: PULMONARY TUBERCULOSIS
     Route: 030
     Dates: start: 19990102
  3. IMIPENEM AND CILASTATIN SODIUM [Suspect]
     Indication: PNEUMONIA
     Route: 042
     Dates: start: 19990107, end: 19990119
  4. CLINDAMYCIN [Suspect]
     Indication: PNEUMONIA
     Route: 042
     Dates: start: 19990120, end: 19990128
  5. ISONIAZID [Suspect]
     Indication: PULMONARY TUBERCULOSIS
     Dosage: 200MG TWICE PER DAY
     Route: 048
     Dates: start: 19990102
  6. CEFTAZIDIME SODIUM [Suspect]
     Dosage: 1G TWICE PER DAY
     Route: 042
     Dates: start: 19990120, end: 19990128
  7. CEFTAZIDIME SODIUM [Suspect]
     Indication: PNEUMONIA
     Dosage: 1G TWICE PER DAY
     Route: 042
     Dates: start: 19990104, end: 19990106

REACTIONS (2)
  - INTERSTITIAL LUNG DISEASE [None]
  - DYSPNOEA [None]
